FAERS Safety Report 16838687 (Version 4)
Quarter: 2019Q4

REPORT INFORMATION
  Report Type: Spontaneous
  Country: TR (occurrence: TR)
  Receive Date: 20190923
  Receipt Date: 20191125
  Transmission Date: 20200122
  Serious: Yes (Hospitalization, Other)
  Sender: FDA-Public Use
  Company Number: TR-SA-2019SA263163

PATIENT
  Age: 45 Year
  Sex: Male

DRUGS (4)
  1. LEMTRADA [Suspect]
     Active Substance: ALEMTUZUMAB
     Dosage: 1 X 1
     Route: 041
     Dates: start: 201808
  2. LEMTRADA [Suspect]
     Active Substance: ALEMTUZUMAB
     Indication: MULTIPLE SCLEROSIS
     Dosage: UNK, UNK
     Route: 041
     Dates: start: 20190910, end: 20190912
  3. ACYCLOVIR [ACICLOVIR] [Concomitant]
     Active Substance: ACYCLOVIR
     Indication: PROPHYLAXIS
     Dosage: 2X200 G
     Route: 065
  4. PREDNOL [METHYLPREDNISOLONE] [Concomitant]
     Indication: PREMEDICATION
     Dosage: UNK UNK, UNK
     Route: 065
     Dates: start: 20190910, end: 20190912

REACTIONS (22)
  - CSF protein abnormal [Unknown]
  - Headache [Recovering/Resolving]
  - White blood cell count abnormal [Unknown]
  - C-reactive protein abnormal [Unknown]
  - Rash [Not Recovered/Not Resolved]
  - Body temperature fluctuation [Unknown]
  - Thyroxine abnormal [Recovered/Resolved]
  - Nausea [Not Recovered/Not Resolved]
  - CSF white blood cell count [Unknown]
  - Vomiting [Not Recovered/Not Resolved]
  - CSF glucose abnormal [Unknown]
  - Pruritus [Not Recovered/Not Resolved]
  - Lymphocyte count abnormal [Unknown]
  - Blood creatinine increased [Unknown]
  - Aspergillus test positive [Not Recovered/Not Resolved]
  - Tri-iodothyronine free abnormal [Recovered/Resolved]
  - Blood urea increased [Unknown]
  - Pyrexia [Recovering/Resolving]
  - Neutrophil count abnormal [Unknown]
  - Meningitis listeria [Recovering/Resolving]
  - Listeria test positive [Unknown]
  - Procalcitonin abnormal [Unknown]

NARRATIVE: CASE EVENT DATE: 201909
